FAERS Safety Report 8234355-7 (Version None)
Quarter: 2012Q1

REPORT INFORMATION
  Report Type: 
  Country: None (occurrence: None)
  Receive Date: 20120322
  Receipt Date: 20120307
  Transmission Date: 20120608
  Serious: Yes (Other)
  Sender: FDA-Public Use
  Company Number: FK201200747

PATIENT
  Age: 54 Year
  Sex: Male
  Weight: 122 kg

DRUGS (12)
  1. AMITRIPTYLINE HCL [Concomitant]
  2. FUROSEMIDE (MANUFACTURER UNKNOWN) (FUROSEMIDE) (FUROSEMIDE) [Suspect]
     Indication: CARDIAC FAILURE
     Dosage: 100 MG, TWICE A DAY, INTRAVENOUS (NOT OTHERWISE SPECIFIED)
     Route: 042
     Dates: start: 20120206, end: 20120210
  3. ACETAMINOPHEN [Concomitant]
  4. CODEINE SULFATE [Concomitant]
  5. ALLOPURINOL [Concomitant]
  6. BISOPROLOL FUMARATE [Concomitant]
  7. CLARITHROMYCIN [Concomitant]
  8. AMOXICILLIN [Concomitant]
  9. ENOXAPARIN [Concomitant]
  10. VITAMIN B SUBSTANCES (VITAMIN B NOS) [Concomitant]
  11. ASCORBIC ACID [Concomitant]
  12. WARFARIN SODIUM [Concomitant]

REACTIONS (2)
  - RASH PUSTULAR [None]
  - RASH GENERALISED [None]
